FAERS Safety Report 16334660 (Version 1)
Quarter: 2019Q2

REPORT INFORMATION
  Report Type: Spontaneous
  Country: CA (occurrence: CA)
  Receive Date: 20190520
  Receipt Date: 20190520
  Transmission Date: 20190711
  Serious: Yes (Hospitalization)
  Sender: FDA-Public Use
  Company Number: CA-ACTELION-A-NJ2018-182899

PATIENT
  Age: 49 Year
  Sex: Female

DRUGS (17)
  1. UPTRAVI [Suspect]
     Active Substance: SELEXIPAG
     Dosage: 400 MCG
     Route: 048
  2. SULFA [Concomitant]
     Active Substance: UNSPECIFIED INGREDIENT
  3. SULFASALAZINE. [Concomitant]
     Active Substance: SULFASALAZINE
  4. FUROSEMIDE. [Concomitant]
     Active Substance: FUROSEMIDE
  5. HYDROXYCHLOROQUINE [Concomitant]
     Active Substance: HYDROXYCHLOROQUINE
  6. ADCIRCA [Concomitant]
     Active Substance: TADALAFIL
  7. ASA [Concomitant]
     Active Substance: ASPIRIN
  8. ACTONEL [Concomitant]
     Active Substance: RISEDRONATE SODIUM
  9. PREDNISONE. [Concomitant]
     Active Substance: PREDNISONE
  10. CALTRATE [Concomitant]
     Active Substance: CALCIUM CARBONATE
  11. SYNTHROID [Concomitant]
     Active Substance: LEVOTHYROXINE SODIUM
  12. SULFATRIM [Concomitant]
     Active Substance: SULFAMETHOXAZOLE\TRIMETHOPRIM
  13. ROSUVASTATIN. [Concomitant]
     Active Substance: ROSUVASTATIN
  14. VITAMIN D [Concomitant]
     Active Substance: VITAMIN D NOS
  15. UPTRAVI [Suspect]
     Active Substance: SELEXIPAG
     Indication: PULMONARY ARTERIAL HYPERTENSION
     Dosage: 600 MCG, UNK
     Route: 048
     Dates: start: 20181029
  16. VOLIBRIS [Concomitant]
     Active Substance: AMBRISENTAN
  17. FERRITIN [Concomitant]
     Active Substance: FERRITIN

REACTIONS (4)
  - Headache [Unknown]
  - Lung transplant [Not Recovered/Not Resolved]
  - Procedural complication [Not Recovered/Not Resolved]
  - Abdominal distension [Unknown]

NARRATIVE: CASE EVENT DATE: 20181128
